FAERS Safety Report 4975605-X (Version None)
Quarter: 2006Q2

REPORT INFORMATION
  Report Type: 
  Country: None (occurrence: None)
  Receive Date: 20060410
  Receipt Date: 20060327
  Transmission Date: 20061013
  Serious: Yes (Death, Hospitalization)
  Sender: FDA-Public Use
  Company Number: FABR-10739

PATIENT
  Age: 55 Year
  Sex: Male
  Weight: 71 kg

DRUGS (11)
  1. FABRAZYME [Suspect]
     Indication: FABRY'S DISEASE
     Dosage: 35 MG QWK IV
     Route: 042
     Dates: start: 20031201, end: 20040816
  2. RENAGEL [Concomitant]
  3. GABAPENTIN [Concomitant]
  4. BICANORM [Concomitant]
  5. XUSAL (LEVOCETIRIZIN) [Concomitant]
  6. NEXIUM [Concomitant]
  7. VIOXX [Concomitant]
  8. DUROGESIC (PATCH) [Concomitant]
  9. FOSAMAX [Concomitant]
  10. EUTHYROX [Concomitant]
  11. TRANCOPAL DOLO [Concomitant]

REACTIONS (7)
  - BRADYARRHYTHMIA [None]
  - LUMBAR SPINAL STENOSIS [None]
  - POSTOPERATIVE INFECTION [None]
  - RESPIRATORY FAILURE [None]
  - SEPSIS [None]
  - SHOCK [None]
  - SOMNOLENCE [None]
